FAERS Safety Report 21343097 (Version 1)
Quarter: 2022Q3

REPORT INFORMATION
  Report Type: Spontaneous
  Country: US (occurrence: None)
  Receive Date: 20220916
  Receipt Date: 20220916
  Transmission Date: 20221026
  Serious: Yes (unspecified)
  Sender: FDA-Public Use
  Company Number: None

PATIENT
  Age: 52 Year
  Sex: Male
  Weight: 128 kg

DRUGS (1)
  1. MOLNUPIRAVIR [Suspect]
     Active Substance: MOLNUPIRAVIR
     Dosage: FREQUENCY : TWICE A DAY;?
     Route: 048
     Dates: start: 20220824, end: 20220824

REACTIONS (3)
  - Rash [None]
  - Urticaria [None]
  - Pruritus [None]

NARRATIVE: CASE EVENT DATE: 20220825
